FAERS Safety Report 13849526 (Version 2)
Quarter: 2017Q3

REPORT INFORMATION
  Report Type: Spontaneous
  Country: US (occurrence: US)
  Receive Date: 20170809
  Receipt Date: 20170921
  Transmission Date: 20171127
  Serious: No
  Sender: FDA-Public Use
  Company Number: US-PFIZER INC-2017341596

PATIENT
  Age: 61 Year
  Sex: Female

DRUGS (1)
  1. IBRANCE [Suspect]
     Active Substance: PALBOCICLIB
     Dosage: 125 MG, CYCLIC, (EVERY DAY FOR 21 DAYS THEN 7 DAYS OFF/DAILY)
     Route: 048
     Dates: start: 20170727

REACTIONS (4)
  - Asthenia [Unknown]
  - Nausea [Unknown]
  - Alopecia [Unknown]
  - Weight decreased [Unknown]
